FAERS Safety Report 5313020-X (Version None)
Quarter: 2007Q2

REPORT INFORMATION
  Report Type: 
  Country: None (occurrence: None)
  Receive Date: 20070424
  Receipt Date: 20070412
  Transmission Date: 20071010
  Serious: Yes (Death)
  Sender: FDA-Public Use
  Company Number: 2006SP001236

PATIENT
  Sex: Male

DRUGS (3)
  1. LUNESTA [Suspect]
     Dates: start: 20060301, end: 20060301
  2. REMERON [Suspect]
     Dates: start: 20060301, end: 20060301
  3. DIAZEPAM [Suspect]
     Dates: end: 20070301

REACTIONS (3)
  - ALCOHOL INTERACTION [None]
  - DRUG INTERACTION [None]
  - DRUG LEVEL BELOW THERAPEUTIC [None]
